FAERS Safety Report 5089737-1 (Version None)
Quarter: 2006Q3

REPORT INFORMATION
  Report Type: 
  Country: None (occurrence: None)
  Receive Date: 20060823
  Receipt Date: 20060811
  Transmission Date: 20061208
  Serious: Yes (Hospitalization, Other)
  Sender: FDA-Public Use
  Company Number: 163-20785-06050442

PATIENT
  Age: 3 Year
  Sex: Female
  Weight: 15 kg

DRUGS (10)
  1. THALOMID [Suspect]
     Indication: GLIOMA
     Dosage: SEE IMAGE
     Route: 048
     Dates: start: 20060315, end: 20060406
  2. THALOMID [Suspect]
     Indication: GLIOMA
     Dosage: SEE IMAGE
     Route: 048
     Dates: start: 20060410, end: 20060801
  3. THALOMID [Suspect]
     Indication: GLIOMA
     Dosage: SEE IMAGE
     Route: 048
     Dates: start: 20060801
  4. BACTRIM [Suspect]
     Indication: GLIOMA
     Dosage: 7.5 ML, EVERY MONDAY AND TUESDAY, ORAL; SEE IMAGE
     Route: 048
     Dates: start: 20060320, end: 20060406
  5. CARBOPLATIN [Suspect]
     Indication: GLIOMA
     Dosage: INJECTION
     Dates: start: 20060315
  6. RADIATION [Suspect]
     Indication: GLIOMA
     Dosage: X 6 WEEKS
     Dates: start: 20060315
  7. MULTIVITAMIN [Concomitant]
  8. MIRALAX [Concomitant]
  9. LANSOPRAZOLE [Concomitant]
  10. ONDANSETRON [Concomitant]

REACTIONS (8)
  - HEADACHE [None]
  - HYPOTENSION [None]
  - NEUTROPENIA [None]
  - OTITIS MEDIA [None]
  - RASH ERYTHEMATOUS [None]
  - RASH MACULO-PAPULAR [None]
  - UPPER RESPIRATORY TRACT CONGESTION [None]
  - WHITE BLOOD CELL COUNT DECREASED [None]
